FAERS Safety Report 19268155 (Version 1)
Quarter: 2021Q2

REPORT INFORMATION
  Report Type: Spontaneous
  Country: US (occurrence: US)
  Receive Date: 20210517
  Receipt Date: 20210517
  Transmission Date: 20210717
  Serious: No
  Sender: FDA-Public Use
  Company Number: None

PATIENT
  Age: 63 Year
  Sex: Female

DRUGS (2)
  1. COSENTYX [Suspect]
     Active Substance: SECUKINUMAB
     Indication: PSORIASIS
     Dosage: ?          OTHER FREQUENCY:ONCE A MONTH;?
     Route: 059
     Dates: start: 20191029
  2. TYLENOL 325 [Concomitant]

REACTIONS (1)
  - Rash papular [None]

NARRATIVE: CASE EVENT DATE: 20210510
